FAERS Safety Report 11800631 (Version 1)
Quarter: 2015Q4

REPORT INFORMATION
  Report Type: Spontaneous
  Country: GB (occurrence: GB)
  Receive Date: 20151204
  Receipt Date: 20151204
  Transmission Date: 20160305
  Serious: Yes (Hospitalization)
  Sender: FDA-Public Use
  Company Number: GB-MICRO LABS LIMITED-BB2015-01390

PATIENT
  Sex: Female

DRUGS (1)
  1. LOSARTAN. [Suspect]
     Active Substance: LOSARTAN
     Indication: HYPERTENSION
     Dosage: SINCE LAST 3YRS INTIALLY TAKING 50MG THEN DOSE INCREASED TO 75MG ON 12-AUG-2015AND THEN 100MG.
     Route: 065
     Dates: start: 20150825

REACTIONS (2)
  - Palpitations [Unknown]
  - Hypertension [Unknown]
